FAERS Safety Report 9017699 (Version 3)
Quarter: 2013Q2

REPORT INFORMATION
  Report Type: Spontaneous
  Country: US (occurrence: US)
  Receive Date: 20130118
  Receipt Date: 20130419
  Transmission Date: 20140414
  Serious: Yes (Other)
  Sender: FDA-Public Use
  Company Number: US-009507513-1301USA005504

PATIENT
  Age: 55 Year
  Sex: Female

DRUGS (9)
  1. SAPHRIS [Suspect]
     Indication: BIPOLAR DISORDER
     Dosage: 10 MG, QD
     Route: 060
     Dates: start: 20130109, end: 20130109
  2. COUMADIN [Concomitant]
  3. LEXAPRO [Concomitant]
  4. TIZANIDINE HYDROCHLORIDE [Concomitant]
  5. NAPROXEN [Concomitant]
  6. PRILOSEC [Concomitant]
  7. XANAX [Concomitant]
  8. LISINOPRIL [Concomitant]
  9. LOPRESSOR [Concomitant]

REACTIONS (7)
  - Paralysis [Recovered/Resolved]
  - Hyperhidrosis [Recovered/Resolved]
  - Dyspnoea [Recovered/Resolved]
  - Extrasystoles [Recovered/Resolved]
  - Movement disorder [Recovered/Resolved]
  - Heart rate decreased [Recovered/Resolved]
  - Inappropriate schedule of drug administration [Unknown]
